FAERS Safety Report 17244935 (Version 4)
Quarter: 2020Q2

REPORT INFORMATION
  Report Type: Report from Study
  Country: PT (occurrence: PT)
  Receive Date: 20200108
  Receipt Date: 20200419
  Transmission Date: 20200713
  Serious: Yes (Hospitalization, Other)
  Sender: FDA-Public Use
  Company Number: PT-CELLTRION INC.-2019PT027003

PATIENT

DRUGS (26)
  1. REMSIMA [Suspect]
     Active Substance: INFLIXIMAB
     Indication: CROHN^S DISEASE
     Dosage: 250 MILLIGRAM
     Route: 042
     Dates: start: 20170518
  2. REMSIMA [Suspect]
     Active Substance: INFLIXIMAB
     Dosage: 250 MILLIGRAM
     Route: 042
     Dates: start: 20180927
  3. REMSIMA [Suspect]
     Active Substance: INFLIXIMAB
     Dosage: 510 MILLIGRAM
     Route: 042
     Dates: start: 20190107, end: 20190107
  4. ALPRAZOLAM. [Concomitant]
     Active Substance: ALPRAZOLAM
     Indication: ANXIETY
     Dosage: 1 MILLIGRAM, ONCE A DAY
     Route: 048
     Dates: start: 201606
  5. OXAZEPAM. [Concomitant]
     Active Substance: OXAZEPAM
     Indication: ANXIETY
     Dosage: 50 MILLIGRAM, ONCE A DAY
     Route: 048
     Dates: start: 201702
  6. REMSIMA [Suspect]
     Active Substance: INFLIXIMAB
     Dosage: 240 MILLIGRAM
     Route: 042
     Dates: start: 20180515
  7. REMSIMA [Suspect]
     Active Substance: INFLIXIMAB
     Dosage: 500 MILLIGRAM
     Route: 042
     Dates: start: 20190219, end: 20190219
  8. PARACETAMOL [Concomitant]
     Active Substance: ACETAMINOPHEN
     Indication: HEADACHE
     Dosage: TABLET, AS NEEDED
     Route: 048
     Dates: start: 20181028
  9. REMSIMA [Suspect]
     Active Substance: INFLIXIMAB
     Dosage: 245 MILLIGRAM
     Route: 042
     Dates: start: 20171115, end: 20171115
  10. REMSIMA [Suspect]
     Active Substance: INFLIXIMAB
     Dosage: 240 MILLIGRAM
     Route: 042
     Dates: start: 20180206, end: 20180206
  11. REMSIMA [Suspect]
     Active Substance: INFLIXIMAB
     Dosage: 500 MILLIGRAM
     Route: 042
     Dates: start: 20190409, end: 20190409
  12. REMSIMA [Suspect]
     Active Substance: INFLIXIMAB
     Dosage: 480 MILLIGRAM
     Route: 042
     Dates: start: 20190606, end: 20190606
  13. REMSIMA [Suspect]
     Active Substance: INFLIXIMAB
     Dosage: 480 MILLIGRAM
     Route: 042
     Dates: start: 20190730
  14. REMSIMA [Suspect]
     Active Substance: INFLIXIMAB
     Dosage: 480 MILLIGRAM
     Route: 042
     Dates: start: 20190916, end: 20190916
  15. PANTOPRAZOLE [Concomitant]
     Active Substance: PANTOPRAZOLE
     Indication: INFLAMMATORY BOWEL DISEASE
     Dosage: 20 MILLIGRAM, ONCE A DAY
     Route: 048
     Dates: start: 2009, end: 20191125
  16. REMSIMA [Suspect]
     Active Substance: INFLIXIMAB
     Dosage: 250 MILLIGRAM
     Route: 042
     Dates: start: 20171228, end: 20171228
  17. REMSIMA [Suspect]
     Active Substance: INFLIXIMAB
     Dosage: 250 MILLIGRAM
     Route: 042
     Dates: start: 20180320, end: 20180320
  18. IBUPROFEN. [Concomitant]
     Active Substance: IBUPROFEN
     Indication: HEADACHE
     Dosage: 600 MILLIGRAM, AS NEEDED
     Route: 048
     Dates: start: 20181028
  19. ZOLMITRIPTAN. [Concomitant]
     Active Substance: ZOLMITRIPTAN
     Indication: HEADACHE
     Dosage: 2.5 MILLIGRAM, AS NEEDED
     Route: 048
     Dates: start: 20181028
  20. REMSIMA [Suspect]
     Active Substance: INFLIXIMAB
     Dosage: UNK
     Route: 042
     Dates: start: 20191121
  21. REMSIMA [Suspect]
     Active Substance: INFLIXIMAB
     Dosage: 250 MILLIGRAM
     Route: 042
     Dates: start: 20180814
  22. REMSIMA [Suspect]
     Active Substance: INFLIXIMAB
     Dosage: 250 MILLIGRAM
     Route: 042
     Dates: start: 20170914
  23. REMSIMA [Suspect]
     Active Substance: INFLIXIMAB
     Dosage: 250 MILLIGRAM
     Route: 042
     Dates: start: 20180703, end: 20180703
  24. REMSIMA [Suspect]
     Active Substance: INFLIXIMAB
     Dosage: 245 MILLIGRAM
     Route: 042
     Dates: start: 20170720
  25. REMSIMA [Suspect]
     Active Substance: INFLIXIMAB
     Dosage: 500 MILLIGRAM
     Route: 042
     Dates: start: 20181121
  26. LORAZEPAM. [Concomitant]
     Active Substance: LORAZEPAM
     Indication: GAIT DISTURBANCE
     Dosage: 2.5 MG, ONCE A DAY
     Route: 048
     Dates: start: 201911

REACTIONS (1)
  - Syncope [Recovered/Resolved]

NARRATIVE: CASE EVENT DATE: 20191125
